FAERS Safety Report 10721732 (Version 1)
Quarter: 2015Q1

REPORT INFORMATION
  Report Type: Report from Study
  Country: CZ (occurrence: CZ)
  Receive Date: 20150119
  Receipt Date: 20150119
  Transmission Date: 20150721
  Serious: Yes (Life-Threatening, Hospitalization)
  Sender: FDA-Public Use
  Company Number: CZ-ABBVIE-14P-217-1264677-00

PATIENT
  Age: 64 Year
  Sex: Female
  Weight: 81.5 kg

DRUGS (10)
  1. DUODOPA [Suspect]
     Active Substance: CARBIDOPA\LEVODOPA
     Indication: PARKINSON^S DISEASE
     Dosage: 1.7ML AS USED, 39 ML TOTAL DAILY DOSE
     Route: 050
     Dates: start: 20120424, end: 20140718
  2. AMANTADIN [Concomitant]
     Active Substance: AMANTADINE
     Indication: PARKINSON^S DISEASE
  3. KETILEPT [Concomitant]
     Indication: INSOMNIA
     Route: 048
     Dates: start: 20140205, end: 20140718
  4. PYRIDOXIN [Concomitant]
     Active Substance: PYRIDOXINE
     Indication: VITAMIN B6 DECREASED
     Route: 048
     Dates: start: 20131107, end: 20140718
  5. AMANTADIN [Concomitant]
     Active Substance: AMANTADINE
     Indication: ASTHENIA
     Route: 048
     Dates: start: 201001, end: 20140718
  6. MONOSAN [Concomitant]
     Indication: MYOCARDIAL ISCHAEMIA
     Route: 048
     Dates: start: 2000, end: 20140718
  7. PAYNOCIL [Concomitant]
     Indication: MYOCARDIAL ISCHAEMIA
     Route: 048
     Dates: start: 20130514, end: 20140711
  8. ISICOM [Concomitant]
     Active Substance: CARBIDOPA\LEVODOPA
     Indication: HYPOKINESIA
     Route: 048
     Dates: start: 20101118, end: 20140718
  9. RIVOTRIL [Concomitant]
     Active Substance: CLONAZEPAM
     Indication: TREMOR
     Route: 048
     Dates: start: 20121010, end: 20140718
  10. TRAMAL [Concomitant]
     Active Substance: TRAMADOL
     Indication: BACK PAIN
     Route: 048
     Dates: start: 20101118, end: 20140718

REACTIONS (5)
  - Jejunal ulcer [Recovered/Resolved]
  - Pneumoperitoneum [Recovered/Resolved]
  - Peritonitis [Recovered/Resolved]
  - Complication of device insertion [Recovered/Resolved]
  - Abdominal pain [Recovered/Resolved]

NARRATIVE: CASE EVENT DATE: 20140711
